FAERS Safety Report 5870437-2 (Version None)
Quarter: 2008Q3

REPORT INFORMATION
  Report Type: 
  Country: None (occurrence: None)
  Receive Date: 20080904
  Receipt Date: 20080618
  Transmission Date: 20090109
  Serious: No
  Sender: FDA-Public Use
  Company Number: US-BRISTOL-MYERS SQUIBB COMPANY-14233415

PATIENT
  Age: 54 Year
  Sex: Female

DRUGS (5)
  1. DEFINITY [Suspect]
     Indication: STRESS ECHOCARDIOGRAM
     Dosage: 6CC DILUTED DEFINITY (1.5CC DEFINITY IN 8.5CC ON BACTERIOSTATIC SALINE).
     Dates: start: 20080618
  2. COREG [Concomitant]
  3. LISINOPRIL [Concomitant]
  4. ASPIRIN [Concomitant]
  5. PRAVACHOL [Concomitant]

REACTIONS (1)
  - BACK PAIN [None]
